FAERS Safety Report 9359393 (Version 1)
Quarter: 2013Q2

REPORT INFORMATION
  Report Type: Spontaneous
  Country: US (occurrence: US)
  Receive Date: 20130620
  Receipt Date: 20130620
  Transmission Date: 20140414
  Serious: Yes (Hospitalization)
  Sender: FDA-Public Use
  Company Number: US-US-EMD SERONO, INC.-7135058

PATIENT
  Age: 29 Year
  Sex: Female

DRUGS (4)
  1. REBIF [Suspect]
     Indication: MULTIPLE SCLEROSIS
     Route: 058
     Dates: start: 201112, end: 20120513
  2. IBUPROFEN [Concomitant]
     Indication: PREMEDICATION
  3. SUBOXONE [Concomitant]
     Indication: ARTHROPATHY
  4. THYROID MEDICATION [Concomitant]
     Indication: PRODUCT USED FOR UNKNOWN INDICATION
     Dates: start: 2006, end: 201202

REACTIONS (2)
  - Multiple sclerosis relapse [Recovering/Resolving]
  - Anger [Unknown]
